FAERS Safety Report 5159333-6 (Version None)
Quarter: 2006Q4

REPORT INFORMATION
  Report Type: 
  Country: None (occurrence: None)
  Receive Date: 20061128
  Receipt Date: 20061121
  Transmission Date: 20070319
  Serious: Yes (Disabling)
  Sender: FDA-Public Use
  Company Number: GB-ALLERGAN-0607787US

PATIENT
  Age: 67 Year
  Sex: Female

DRUGS (1)
  1. DYSPORT [Suspect]
     Indication: TORTICOLLIS
     Dosage: UNK, SINGLE
     Route: 030

REACTIONS (3)
  - MUSCLE SPASMS [None]
  - PAIN [None]
  - PARAESTHESIA [None]
